FAERS Safety Report 8363489-1 (Version None)
Quarter: 2012Q2

REPORT INFORMATION
  Report Type: 
  Country: None (occurrence: None)
  Receive Date: 20120516
  Receipt Date: 20120502
  Transmission Date: 20120825
  Serious: Yes (Death, Life-Threatening, Hospitalization, Other)
  Sender: FDA-Public Use
  Company Number: US-MYLANLABS-2008AL009835

PATIENT
  Sex: Male
  Weight: 113.85 kg

DRUGS (25)
  1. WARFARIN SODIUM [Concomitant]
  2. FUROSEMIDE [Concomitant]
  3. ACCUPRIL [Concomitant]
  4. ADALAT [Concomitant]
  5. COREG [Concomitant]
  6. PROMETHAZINE [Concomitant]
  7. VIGAMOX [Concomitant]
  8. NIFEDIPINE [Concomitant]
  9. CEPHALEXIN [Concomitant]
  10. TUSSIONEX /00004701/ [Concomitant]
  11. QUINAPRIL [Concomitant]
  12. DIGOXIN [Suspect]
     Indication: ATRIAL FIBRILLATION
     Route: 048
     Dates: start: 20070601, end: 20090622
  13. ZITHROMAX [Concomitant]
  14. AVELOX [Concomitant]
  15. AMOXICILLIN [Concomitant]
  16. SPIRONOLACTONE [Concomitant]
  17. METRONIDAZOLE [Concomitant]
  18. HYDROCODONE BITARTRATE [Concomitant]
  19. VERSED [Concomitant]
  20. PHENTANYL [Concomitant]
  21. POTASSIUM CHLORIDE [Concomitant]
  22. PROCARDIA /00340701/ [Concomitant]
  23. PHENERGAN [Concomitant]
     Indication: NAUSEA
  24. PIPERACILLIN [Concomitant]
  25. CARVEDILOL [Concomitant]

REACTIONS (75)
  - DECREASED APPETITE [None]
  - DIARRHOEA [None]
  - PANCREATITIS [None]
  - WEIGHT DECREASED [None]
  - VOMITING [None]
  - COUGH [None]
  - ANXIETY [None]
  - ARTERIOGRAM CORONARY [None]
  - RALES [None]
  - ACTIVITIES OF DAILY LIVING IMPAIRED [None]
  - DEFORMITY [None]
  - PULMONARY HYPERTENSION [None]
  - HEART RATE IRREGULAR [None]
  - ECHOCARDIOGRAM ABNORMAL [None]
  - GALLOP RHYTHM PRESENT [None]
  - LABORATORY TEST ABNORMAL [None]
  - LEUKOCYTOSIS [None]
  - PALLOR [None]
  - TACHYCARDIA [None]
  - ULTRASOUND SCAN ABNORMAL [None]
  - ABDOMINAL PAIN UPPER [None]
  - ASTHENIA [None]
  - TOXICITY TO VARIOUS AGENTS [None]
  - CARDIAC ARREST [None]
  - EMOTIONAL DISTRESS [None]
  - FEAR [None]
  - ASCITES [None]
  - INTERNATIONAL NORMALISED RATIO INCREASED [None]
  - HYPOTENSION [None]
  - ABDOMINAL DISTENSION [None]
  - ALCOHOL ABUSE [None]
  - HAEMODIALYSIS [None]
  - DEATH [None]
  - MUSCULAR WEAKNESS [None]
  - ATRIAL FIBRILLATION [None]
  - DIALYSIS [None]
  - HYPERTENSION [None]
  - HYPERGLYCAEMIA [None]
  - CONFUSIONAL STATE [None]
  - DISCOMFORT [None]
  - ILL-DEFINED DISORDER [None]
  - DEHYDRATION [None]
  - ABDOMINAL DISCOMFORT [None]
  - RENAL FAILURE [None]
  - CONGESTIVE CARDIOMYOPATHY [None]
  - PLEURAL EFFUSION [None]
  - CARDIAC MURMUR [None]
  - COMPUTERISED TOMOGRAM ABNORMAL [None]
  - HYPOKALAEMIA [None]
  - RHONCHI [None]
  - URINARY TRACT INFECTION [None]
  - NAUSEA [None]
  - CARDIOVERSION [None]
  - LOSS OF EMPLOYMENT [None]
  - CYST [None]
  - MALAISE [None]
  - VENTRICULAR TACHYCARDIA [None]
  - OEDEMA PERIPHERAL [None]
  - CARDIOMEGALY [None]
  - CATHETERISATION CARDIAC [None]
  - VENOUS INSUFFICIENCY [None]
  - PAIN [None]
  - CARDIAC FAILURE CONGESTIVE [None]
  - RETCHING [None]
  - PANCREATITIS ACUTE [None]
  - SEPSIS [None]
  - SOMNOLENCE [None]
  - FATIGUE [None]
  - BLOOD PRESSURE DECREASED [None]
  - INJURY [None]
  - CATARACT [None]
  - ABDOMINAL TENDERNESS [None]
  - CHEST X-RAY ABNORMAL [None]
  - HOSPICE CARE [None]
  - HYPONATRAEMIA [None]
